FAERS Safety Report 6743629-8 (Version None)
Quarter: 2010Q2

REPORT INFORMATION
  Report Type: 
  Country: None (occurrence: None)
  Receive Date: 20100527
  Receipt Date: 20100518
  Transmission Date: 20101027
  Serious: Yes (Hospitalization)
  Sender: FDA-Public Use
  Company Number: US-ROCHE-699654

PATIENT
  Sex: Male

DRUGS (8)
  1. PEGASYS [Suspect]
     Indication: HEPATITIS C
     Dosage: FORM: PRE-FILLED SYRINGE
     Route: 058
     Dates: start: 20100404
  2. PEGASYS [Suspect]
     Route: 058
     Dates: start: 20100425
  3. RIBAVIRIN [Suspect]
     Indication: HEPATITIS C
     Dosage: IN DIVIDED DOSES
     Route: 048
     Dates: start: 20100404
  4. RIBAVIRIN [Suspect]
     Route: 048
     Dates: start: 20100425
  5. ALDACTONE [Suspect]
     Indication: DRUG USE FOR UNKNOWN INDICATION
     Route: 065
  6. ALDACTONE [Suspect]
     Dosage: DOSE DECREASED
     Route: 065
  7. ALDACTONE [Suspect]
     Dosage: DOSE INCREASED.
     Route: 065
  8. METFORMIN HYDROCHLORIDE [Concomitant]

REACTIONS (6)
  - ARTHRALGIA [None]
  - FATIGUE [None]
  - HAEMATEMESIS [None]
  - HYPONATRAEMIA [None]
  - NAUSEA [None]
  - PAIN [None]
